FAERS Safety Report 17624270 (Version 2)
Quarter: 2020Q2

REPORT INFORMATION
  Report Type: Spontaneous
  Country: JP (occurrence: JP)
  Receive Date: 20200403
  Receipt Date: 20200521
  Transmission Date: 20200713
  Serious: Yes (Hospitalization, Other)
  Sender: FDA-Public Use
  Company Number: JP-PFIZER INC-2020136630

PATIENT
  Age: 69 Year
  Sex: Male
  Weight: 53.1 kg

DRUGS (8)
  1. BIO-THREE [Concomitant]
     Active Substance: HERBALS
     Dosage: UNK
  2. NEXIUM [Concomitant]
     Active Substance: ESOMEPRAZOLE MAGNESIUM
     Dosage: UNK
  3. CIPROFLOXACIN. [Concomitant]
     Active Substance: CIPROFLOXACIN
     Dosage: UNK
  4. TEICOPLANIN [Concomitant]
     Active Substance: TEICOPLANIN
     Dosage: UNK
     Route: 042
  5. ACELIO [Concomitant]
     Active Substance: ACETAMINOPHEN
     Dosage: UNK
  6. ITRACONAZOLE PFIZER [Concomitant]
     Dosage: UNK
  7. MEROPENEM PFIZER [Suspect]
     Active Substance: MEROPENEM
     Indication: FEBRILE NEUTROPENIA
     Dosage: 1 G, 3X/DAY
     Route: 041
     Dates: start: 20190901, end: 20190905
  8. SOLDEM 3A [Concomitant]
     Active Substance: CARBOHYDRATES\POTASSIUM CHLORIDE\SODIUM CHLORIDE\SODIUM LACTATE
     Dosage: UNK

REACTIONS (7)
  - Oral mucosal erythema [Recovering/Resolving]
  - Septic shock [Unknown]
  - Conjunctival hyperaemia [Recovering/Resolving]
  - Pyrexia [Unknown]
  - Blood pressure decreased [Unknown]
  - Anaphylactic reaction [Recovering/Resolving]
  - Rash [Recovering/Resolving]

NARRATIVE: CASE EVENT DATE: 20190904
